FAERS Safety Report 17455291 (Version 1)
Quarter: 2020Q1

REPORT INFORMATION
  Report Type: Spontaneous
  Country: US (occurrence: US)
  Receive Date: 20200211
  Receipt Date: 20200211
  Transmission Date: 20200409
  Serious: Yes (Disabling)
  Sender: FDA-Public Use
  Company Number: None

PATIENT
  Age: 57 Year
  Sex: Female
  Weight: 65.77 kg

DRUGS (5)
  1. PREDNIZONE DOCE PACK [Concomitant]
  2. VENTOLIN 90 MCG [Concomitant]
  3. DIAZEPAM 10 MG [Concomitant]
     Active Substance: DIAZEPAM
  4. NEURONTIN [Suspect]
     Active Substance: GABAPENTIN
     Indication: NERVE COMPRESSION
     Dosage: ?          QUANTITY:1 CAPSULE;?
     Route: 048
     Dates: start: 20200124, end: 20200125
  5. ADVAIR DISKUS [Concomitant]
     Active Substance: FLUTICASONE PROPIONATE\SALMETEROL XINAFOATE

REACTIONS (5)
  - Drug hypersensitivity [None]
  - Headache [None]
  - Eye movement disorder [None]
  - Irritability [None]
  - Tremor [None]

NARRATIVE: CASE EVENT DATE: 20200125
